FAERS Safety Report 8539739-5 (Version None)
Quarter: 2012Q3

REPORT INFORMATION
  Report Type: 
  Country: None (occurrence: None)
  Receive Date: 20120726
  Receipt Date: 20120207
  Transmission Date: 20120928
  Serious: No
  Sender: FDA-Public Use
  Company Number: US-ASTRAZENECA-2009SE21275

PATIENT
  Age: 57 Year
  Sex: Male
  Weight: 112 kg

DRUGS (8)
  1. ENALAPRIL MALEATE [Concomitant]
  2. SEROQUEL [Suspect]
     Route: 048
  3. SEROQUEL [Suspect]
     Route: 048
  4. SEROQUEL [Suspect]
     Route: 048
  5. SEROQUEL [Suspect]
     Indication: ANXIETY
     Route: 048
     Dates: start: 20070101
  6. SEROQUEL [Suspect]
     Indication: POOR QUALITY SLEEP
     Route: 048
     Dates: start: 20070101
  7. SEROQUEL [Suspect]
     Route: 048
  8. HYDROCHLOROTHIAZIDE [Concomitant]

REACTIONS (9)
  - PERIPHERAL VASCULAR DISORDER [None]
  - HIGH DENSITY LIPOPROTEIN DECREASED [None]
  - HYPERTENSION [None]
  - HYPOAESTHESIA [None]
  - VENTRICULAR EXTRASYSTOLES [None]
  - BLOOD GLUCOSE INCREASED [None]
  - BLOOD TRIGLYCERIDES INCREASED [None]
  - WEIGHT INCREASED [None]
  - OFF LABEL USE [None]
